FAERS Safety Report 7198894-2 (Version None)
Quarter: 2010Q4

REPORT INFORMATION
  Report Type: 
  Country: None (occurrence: None)
  Receive Date: 20101227
  Receipt Date: 20101216
  Transmission Date: 20110411
  Serious: Yes (Life-Threatening, Hospitalization, Other)
  Sender: FDA-Public Use
  Company Number: IN-SANOFI-AVENTIS-2010SA073467

PATIENT
  Age: 78 Year
  Sex: Female
  Weight: 65 kg

DRUGS (11)
  1. INDAPAMIDE [Suspect]
     Route: 048
     Dates: start: 20101102, end: 20101111
  2. RAMIPRIL [Concomitant]
     Route: 065
  3. AMLODIPINE [Concomitant]
     Route: 065
  4. NEBIVOLOL [Concomitant]
     Route: 065
  5. ISOSORBIDE MONONITRATE [Concomitant]
     Route: 065
  6. ATORVASTATIN [Concomitant]
     Route: 065
  7. CLOPIDOGREL [Concomitant]
     Route: 065
  8. CALCIUM CARBONATE/COLECALCIFEROL [Concomitant]
     Route: 065
  9. PANTOPRAZOLE [Concomitant]
     Route: 065
  10. LIBRAX [Concomitant]
     Route: 065
  11. SUPRADYN /NET/ [Concomitant]
     Route: 065

REACTIONS (8)
  - COMA [None]
  - FATIGUE [None]
  - HYPOKALAEMIA [None]
  - HYPONATRAEMIA [None]
  - MULTI-ORGAN FAILURE [None]
  - OESOPHAGEAL RUPTURE [None]
  - SEPSIS [None]
  - VOMITING [None]
